FAERS Safety Report 10521200 (Version 2)
Quarter: 2014Q4

REPORT INFORMATION
  Report Type: Report from Study
  Country: CA (occurrence: CA)
  Receive Date: 20141016
  Receipt Date: 20141016
  Transmission Date: 20150528
  Serious: Yes (Other)
  Sender: FDA-Public Use
  Company Number: CA-BRISTOL-MYERS SQUIBB COMPANY-19009265

PATIENT
  Age: 58 Year
  Sex: Male
  Weight: 99 kg

DRUGS (5)
  1. ACETYLSALICYLIC ACID [Concomitant]
     Active Substance: ASPIRIN
     Indication: PROPHYLAXIS
     Route: 048
     Dates: start: 2005
  2. JANUVIA [Concomitant]
     Active Substance: SITAGLIPTIN PHOSPHATE
     Indication: DIABETES MELLITUS
     Route: 048
     Dates: start: 2005
  3. METFORMIN [Concomitant]
     Active Substance: METFORMIN HYDROCHLORIDE
     Indication: DIABETES MELLITUS
     Route: 048
     Dates: start: 2005
  4. AVAPRO [Concomitant]
     Active Substance: IRBESARTAN
     Indication: HYPERTENSION
     Dosage: 1DF=300-25MG
     Route: 048
     Dates: start: 20120929
  5. SPRYCEL [Suspect]
     Active Substance: DASATINIB
     Indication: CHRONIC MYELOID LEUKAEMIA
     Dosage: 24SEP-11OCT11:100MG?12OCT11-16AUG12:80MG?17AUG12-2JAN13:60MG?3JAN13:80MG?10JUN13-LAST DOSE
     Dates: start: 20110924, end: 20130610

REACTIONS (1)
  - Lymphoid tissue hyperplasia [Recovered/Resolved]

NARRATIVE: CASE EVENT DATE: 20130410
